FAERS Safety Report 9261598 (Version 2)
Quarter: 2013Q2

REPORT INFORMATION
  Report Type: Report from Study
  Country: DE (occurrence: DE)
  Receive Date: 20130429
  Receipt Date: 20130617
  Transmission Date: 20140414
  Serious: Yes (Hospitalization)
  Sender: FDA-Public Use
  Company Number: DE-VERTEX PHARMACEUTICALS INC.-AE-2012-011493

PATIENT
  Age: 59 Year
  Sex: Male
  Weight: 63 kg

DRUGS (13)
  1. VX-950 (TELAPREVIR) [Suspect]
     Indication: HEPATITIS C
     Dosage: 2250 MG
     Route: 048
     Dates: start: 20120207, end: 20120427
  2. PEGASYS [Concomitant]
     Indication: HEPATITIS C
     Dosage: 135 ?G, QW
     Route: 058
     Dates: start: 20111209
  3. COPEGUS [Concomitant]
     Indication: HEPATITIS C
     Dosage: 200 MG, UNK
     Route: 048
     Dates: start: 20120221
  4. MAGNESIUM [Concomitant]
     Dosage: DOSAGE FORM: EFFERVESCENT TABLETS
  5. RENAGEL [Concomitant]
  6. RENAGEL [Concomitant]
     Dosage: DOSAGE FORM: FILM COATED TABLET
     Route: 048
  7. CALCITRIOL [Concomitant]
  8. CALCITRIOL [Concomitant]
     Dosage: DOSAGE FORM: CAPSULES
  9. DERMATOP [Concomitant]
     Dosage: UNK, PRN
  10. CETIRIZIN [Concomitant]
     Dosage: UNK, PRN
     Route: 048
  11. ST MARY^S THISTLE [Concomitant]
     Dosage: UNK, QD
  12. OSVAREN [Concomitant]
     Dosage: UNK, TID
  13. ROXITHROMYCIN [Concomitant]
     Dosage: UNK, QD
     Dates: end: 20120420

REACTIONS (1)
  - Cerebrovascular accident [Recovered/Resolved]
